FAERS Safety Report 11073047 (Version 2)
Quarter: 2015Q2

REPORT INFORMATION
  Report Type: Spontaneous
  Country: JP (occurrence: JP)
  Receive Date: 20150428
  Receipt Date: 20150513
  Transmission Date: 20150821
  Serious: Yes (Other)
  Sender: FDA-Public Use
  Company Number: JP-GLAXOSMITHKLINE-JP2015JPN055031

PATIENT

DRUGS (1)
  1. VOTRIENT [Suspect]
     Active Substance: PAZOPANIB HYDROCHLORIDE
     Indication: ANGIOSARCOMA
     Dosage: 400 MG, 1D
     Route: 048
     Dates: start: 201402

REACTIONS (2)
  - Angiosarcoma [Unknown]
  - Angiosarcoma [Unknown]

NARRATIVE: CASE EVENT DATE: 20140422
